FAERS Safety Report 7618614-4 (Version None)
Quarter: 2011Q3

REPORT INFORMATION
  Report Type: 
  Country: None (occurrence: None)
  Receive Date: 20110718
  Receipt Date: 20110708
  Transmission Date: 20111222
  Serious: Yes (Hospitalization, Other)
  Sender: FDA-Public Use
  Company Number: US-BRISTOL-MYERS SQUIBB COMPANY-15890106

PATIENT
  Age: 89 Year
  Sex: Female

DRUGS (1)
  1. COUMADIN [Suspect]
     Indication: CEREBROVASCULAR ACCIDENT

REACTIONS (6)
  - PNEUMONIA [None]
  - ASTHENIA [None]
  - ULCER HAEMORRHAGE [None]
  - URINARY TRACT INFECTION [None]
  - SYNCOPE [None]
  - LACERATION [None]
